FAERS Safety Report 7033423-5 (Version None)
Quarter: 2010Q4

REPORT INFORMATION
  Report Type: 
  Country: None (occurrence: None)
  Receive Date: 20101007
  Receipt Date: 20100926
  Transmission Date: 20110411
  Serious: Yes (Death)
  Sender: FDA-Public Use
  Company Number: DZ-GENENTECH-306627

PATIENT
  Age: 29 Year
  Sex: Male

DRUGS (3)
  1. MABTHERA [Suspect]
     Indication: RHEUMATOID ARTHRITIS
     Dosage: 1000 MG, X1
     Route: 042
     Dates: start: 20100822, end: 20100822
  2. ARAVA [Suspect]
     Indication: RHEUMATOID ARTHRITIS
     Dosage: UNK
     Route: 048
     Dates: start: 20100822
  3. METHOTREXATE [Concomitant]
     Indication: RHEUMATOID ARTHRITIS
     Dosage: UNK
     Route: 048

REACTIONS (5)
  - CARDIAC ARREST [None]
  - DEATH [None]
  - DRUG INTERACTION [None]
  - HEPATIC FAILURE [None]
  - OEDEMA PERIPHERAL [None]
